FAERS Safety Report 9063525 (Version 1)
Quarter: 2013Q1

REPORT INFORMATION
  Report Type: Report from Study
  Country: US (occurrence: US)
  Receive Date: 20130129
  Receipt Date: 20130129
  Transmission Date: 20140127
  Serious: No
  Sender: FDA-Public Use
  Company Number: US-ABBOTT-12P-163-0945098-00

PATIENT
  Age: 38 Year
  Sex: Female

DRUGS (7)
  1. HUMIRA 40 MG/0.8 ML PEN [Suspect]
     Indication: PSORIASIS
     Dosage: 80MG (ONLY 40MG GIVEN DUE TO MISFIRE)
     Dates: start: 20120608
  2. PROPRANOLOL [Concomitant]
     Indication: MIGRAINE
     Dosage: 120MG DAILY
  3. IMITREX [Concomitant]
     Indication: MIGRAINE
  4. ZANTAC [Concomitant]
     Indication: PRODUCT USED FOR UNKNOWN INDICATION
     Dosage: 300MG DAILY
  5. BACTRIUM [Concomitant]
     Indication: PRODUCT USED FOR UNKNOWN INDICATION
  6. IBUPROFEN [Concomitant]
     Indication: PRODUCT USED FOR UNKNOWN INDICATION
  7. PRILOSEC [Concomitant]
     Indication: PRODUCT USED FOR UNKNOWN INDICATION

REACTIONS (4)
  - Migraine [None]
  - Migraine [Not Recovered/Not Resolved]
  - Migraine [Not Recovered/Not Resolved]
  - Injection site swelling [Not Recovered/Not Resolved]
